FAERS Safety Report 8112109-X (Version None)
Quarter: 2012Q1

REPORT INFORMATION
  Report Type: 
  Country: None (occurrence: None)
  Receive Date: 20120203
  Receipt Date: 20120131
  Transmission Date: 20120608
  Serious: Yes (Other)
  Sender: FDA-Public Use
  Company Number: US-PFIZER INC-2011270578

PATIENT
  Sex: Male
  Weight: 113 kg

DRUGS (5)
  1. ACCUPRIL [Suspect]
     Indication: DIABETES MELLITUS
     Dosage: 5 MG, DAILY
     Route: 048
     Dates: start: 20100101
  2. NORVASC [Suspect]
     Dosage: UNK
  3. ACETYLSALICYLIC ACID [Concomitant]
     Indication: VENOUS THROMBOSIS
     Dosage: UNK
  4. ACCUPRIL [Suspect]
     Indication: RENAL DISORDER
     Dosage: UNK, SPLITTING THE 5MG TABLET
     Route: 048
     Dates: start: 20100101
  5. IBUPROFEN (ADVIL) [Concomitant]
     Dosage: UNK

REACTIONS (2)
  - BLOOD VISCOSITY INCREASED [None]
  - DIABETES MELLITUS [None]
